FAERS Safety Report 8016062-9 (Version None)
Quarter: 2011Q4

REPORT INFORMATION
  Report Type: 
  Country: None (occurrence: None)
  Receive Date: 20111230
  Receipt Date: 20111228
  Transmission Date: 20120403
  Serious: No
  Sender: FDA-Public Use
  Company Number: US-B.I. PHARMACEUTICALS,INC./RIDGEFIELD-2011-BP-28934BP

PATIENT
  Sex: Male

DRUGS (7)
  1. PRADAXA [Suspect]
     Dosage: 300 MG
     Route: 048
     Dates: start: 20111201
  2. RYTHMOL [Concomitant]
  3. DIGOXIN [Concomitant]
  4. GLIMEPIRIDE [Concomitant]
  5. HYDROCHLOROTHIAZIDE [Concomitant]
  6. PRADAXA [Suspect]
     Indication: ATRIAL FIBRILLATION
     Dosage: 300 MG
     Route: 048
     Dates: start: 20110201, end: 20111201
  7. LIPISOL [Concomitant]

REACTIONS (2)
  - URINARY TRACT INFECTION [None]
  - HAEMATURIA [None]
